FAERS Safety Report 12617681 (Version 7)
Quarter: 2017Q3

REPORT INFORMATION
  Report Type: Spontaneous
  Country: US (occurrence: US)
  Receive Date: 20160803
  Receipt Date: 20170705
  Transmission Date: 20171127
  Serious: No
  Sender: FDA-Public Use
  Company Number: US-PFIZER INC-2016342733

PATIENT
  Age: 68 Year
  Sex: Female
  Weight: 58.9 kg

DRUGS (4)
  1. IBRANCE [Suspect]
     Active Substance: PALBOCICLIB
     Dosage: 100 MG, CYCLIC (D1-21 Q28 DAYS)
     Route: 048
     Dates: start: 20160628
  2. IBRANCE [Suspect]
     Active Substance: PALBOCICLIB
     Dosage: 100 MG, CYCLIC (DAYS 1-21 Q 28 DAYS)
     Route: 048
  3. IBRANCE [Suspect]
     Active Substance: PALBOCICLIB
     Indication: BREAST CANCER METASTATIC
     Dosage: 125 MG, CYCLIC (1 CAPSULE DAY1-DAY21 EVERY 28 DAYS) (D 1-21 Q 28 DAYS)
     Route: 048
     Dates: start: 20160628
  4. IBRANCE [Suspect]
     Active Substance: PALBOCICLIB
     Dosage: 100 MG, CYCLIC (D1-D21, Q 28 D)
     Route: 048
     Dates: start: 20160628

REACTIONS (17)
  - Hot flush [Unknown]
  - Pain in extremity [Unknown]
  - Dyspepsia [Unknown]
  - Fatigue [Unknown]
  - Asthenia [Unknown]
  - Chills [Unknown]
  - Sciatica [Unknown]
  - Abdominal discomfort [Unknown]
  - Nausea [Unknown]
  - Depressed mood [Unknown]
  - Insomnia [Unknown]
  - Bone pain [Unknown]
  - Diarrhoea [Unknown]
  - Dizziness [Unknown]
  - Neoplasm progression [Unknown]
  - Frequent bowel movements [Unknown]
  - White blood cell count decreased [Unknown]

NARRATIVE: CASE EVENT DATE: 201607
